FAERS Safety Report 8264570-8 (Version None)
Quarter: 2012Q2

REPORT INFORMATION
  Report Type: 
  Country: None (occurrence: None)
  Receive Date: 20120404
  Receipt Date: 20120321
  Transmission Date: 20120825
  Serious: No
  Sender: FDA-Public Use
  Company Number: JP-1190895

PATIENT
  Age: 6 Year
  Sex: Male
  Weight: 23 kg

DRUGS (2)
  1. PATANOL [Suspect]
     Indication: CONJUNCTIVITIS ALLERGIC
     Dosage: (1 GTT QID OPHTHALMIC)
     Route: 047
     Dates: start: 20110614, end: 20120227
  2. FLUOROMETHOLONE [Concomitant]

REACTIONS (1)
  - ANAPHYLACTOID REACTION [None]
